FAERS Safety Report 9618113 (Version 1)
Quarter: 2013Q4

REPORT INFORMATION
  Report Type: Spontaneous
  Country: US (occurrence: US)
  Receive Date: 20131013
  Receipt Date: 20131013
  Transmission Date: 20140711
  Serious: Yes (Other)
  Sender: FDA-Public Use
  Company Number: US-ROXANE LABORATORIES, INC.-2013-RO-01651RO

PATIENT
  Age: 9 Year
  Sex: 0

DRUGS (1)
  1. DIAZEPAM [Suspect]
     Indication: STATUS EPILEPTICUS

REACTIONS (1)
  - Sedation [Unknown]
